FAERS Safety Report 11756016 (Version 7)
Quarter: 2020Q3

REPORT INFORMATION
  Report Type: Spontaneous
  Country: FR (occurrence: FR)
  Receive Date: 20151119
  Receipt Date: 20200722
  Transmission Date: 20201102
  Serious: Yes (Life-Threatening, Hospitalization, Other)
  Sender: FDA-Public Use
  Company Number: FR-PFIZER INC-2015383921

PATIENT
  Age: 61 Year
  Sex: Female
  Weight: 76 kg

DRUGS (8)
  1. DACLATASVIR. [Interacting]
     Active Substance: DACLATASVIR
     Indication: CHRONIC HEPATITIS C
     Dosage: 60 MG, UNK
     Route: 065
     Dates: start: 20150112, end: 20150112
  2. ATORVASTATIN [Concomitant]
     Active Substance: ATORVASTATIN
     Dosage: 20 MG, UNK
     Route: 065
  3. AMIODARONE HCL [Suspect]
     Active Substance: AMIODARONE HYDROCHLORIDE
     Indication: ARRHYTHMIA
     Dosage: 200 MG, UNK
     Route: 065
     Dates: end: 20150112
  4. ATENOLOL. [Concomitant]
     Active Substance: ATENOLOL
     Indication: HYPERTENSION
     Dosage: 50 MG, UNK
     Dates: start: 20150109, end: 20150112
  5. TOPALGIC [SUPROFEN] [Concomitant]
     Active Substance: SUPROFEN
     Dosage: UNK
  6. SOFOSBUVIR [Interacting]
     Active Substance: SOFOSBUVIR
     Indication: CHRONIC HEPATITIS C
     Dosage: 400 MG, UNK
     Route: 065
     Dates: start: 20150112, end: 20150112
  7. TOPALGIC [TRAMADOL HYDROCHLORIDE] [Concomitant]
     Active Substance: TRAMADOL HYDROCHLORIDE
     Dosage: UNK
  8. FLUINDIONE [Concomitant]
     Active Substance: FLUINDIONE
     Dosage: UNK

REACTIONS (4)
  - Drug interaction [Unknown]
  - Syncope [Recovered/Resolved]
  - Sinus bradycardia [Recovered/Resolved]
  - Cardiac arrest [Recovered/Resolved]

NARRATIVE: CASE EVENT DATE: 20150112
